FAERS Safety Report 10689884 (Version 1)
Quarter: 2015Q1

REPORT INFORMATION
  Report Type: Spontaneous
  Country: JP (occurrence: JP)
  Receive Date: 20150105
  Receipt Date: 20150105
  Transmission Date: 20150720
  Serious: Yes (Other)
  Sender: FDA-Public Use
  Company Number: JP-CIPLA LTD.-2014JP02981

PATIENT

DRUGS (2)
  1. ELPAMOTIDE [Suspect]
     Active Substance: ELPAMOTIDE
     Indication: BILE DUCT CANCER
     Dosage: (2.0 MG/ML/BODY) ON DAY 1, 8, 15 AND 22 OF A SINGLE WEEKLY INJECTION, (4 WEEKS).
     Route: 058
  2. GEMCITABINE [Suspect]
     Active Substance: GEMCITABINE\GEMCITABINE HYDROCHLORIDE
     Indication: BILE DUCT CANCER
     Dosage: (1000 MG/M2/30 MIN) ON DAY 1, 8 AND 15 (DAY 22 WAS SKIPPED) SINGLE WEEKLY MEDIATION (4 WEEKS).

REACTIONS (1)
  - Thrombotic microangiopathy [Unknown]
